FAERS Safety Report 8186169-4 (Version None)
Quarter: 2012Q1

REPORT INFORMATION
  Report Type: 
  Country: None (occurrence: None)
  Receive Date: 20120306
  Receipt Date: 20120301
  Transmission Date: 20120608
  Serious: No
  Sender: FDA-Public Use
  Company Number: US-PFIZER INC-2012055535

PATIENT
  Sex: Female

DRUGS (15)
  1. VENLAFAXINE HCL [Suspect]
     Dosage: UNK
  2. NEXIUM [Concomitant]
  3. BUPROPION HCL [Suspect]
     Dosage: UNK
  4. VALIUM [Concomitant]
  5. NEURONTIN [Concomitant]
     Dosage: 600 MG 1 TABLET BID AND 3 TABLETS AT SLEEP
  6. OXYCODONE HYDROCHLORIDE [Suspect]
     Dosage: UNK
  7. TRAMADOL HYDROCHLORIDE [Suspect]
     Dosage: UNK
  8. MORPHINE SULFATE [Suspect]
     Dosage: UNK
  9. AMITRIPTYLINE HCL [Suspect]
     Dosage: UNK
  10. FLONASE [Concomitant]
  11. PERCOCET [Concomitant]
  12. TOPAMAX [Concomitant]
  13. LIPITOR [Concomitant]
  14. PENICILLIN [Suspect]
  15. CELEXA [Concomitant]

REACTIONS (1)
  - DRUG HYPERSENSITIVITY [None]
